FAERS Safety Report 6884489-4 (Version None)
Quarter: 2010Q3

REPORT INFORMATION
  Report Type: 
  Country: None (occurrence: None)
  Receive Date: 20100729
  Receipt Date: 20070712
  Transmission Date: 20110219
  Serious: Yes (Disabling, Other)
  Sender: FDA-Public Use
  Company Number: US-PFIZER INC-2007058427

PATIENT
  Sex: Male
  Weight: 77.1 kg

DRUGS (3)
  1. CELEBREX [Suspect]
     Indication: BACK PAIN
     Dates: start: 19980101, end: 20040101
  2. ACETYLSALICYLIC ACID SRT [Concomitant]
  3. VIOXX [Concomitant]

REACTIONS (2)
  - CHEST PAIN [None]
  - PAIN [None]
